FAERS Safety Report 4699987-1 (Version None)
Quarter: 2005Q2

REPORT INFORMATION
  Report Type: 
  Country: None (occurrence: None)
  Receive Date: 20050623
  Receipt Date: 20050609
  Transmission Date: 20051028
  Serious: Yes (Hospitalization)
  Sender: FDA-Public Use
  Company Number: 203623

PATIENT
  Age: 42 Year
  Sex: Female

DRUGS (30)
  1. AVONEX [Suspect]
     Indication: MULTIPLE SCLEROSIS
     Dosage: 30 UG;QW;IM
     Route: 030
     Dates: start: 20000901, end: 20030825
  2. AVONEX [Suspect]
     Indication: MULTIPLE SCLEROSIS
     Dosage: 30 UG;QW;IM
     Route: 030
  3. AZITHROMYCIN [Concomitant]
  4. TEGASEROD [Concomitant]
  5. XANAX [Concomitant]
  6. PROZAC [Concomitant]
  7. PROGESTERONE [Concomitant]
  8. BETASERON [Concomitant]
  9. TEMAZEPAM [Concomitant]
  10. LANSOPRAZOLE [Concomitant]
  11. MULTI-VITAMINS [Concomitant]
  12. SUMATRIPTAN [Concomitant]
  13. ACETAMINOPHEN [Concomitant]
  14. IBUPROFEN [Concomitant]
  15. VIBRAMYCIN [Concomitant]
  16. PHENAZOPYRIDINE [Concomitant]
  17. CLIDINIUM [Concomitant]
  18. ESTRADIOL [Concomitant]
  19. SULFAMETHOXAZOLE + TRIMETHOPRIM [Concomitant]
  20. DESLORATADINE [Concomitant]
  21. PROMETHAZINE [Concomitant]
  22. MEPERIDINE [Concomitant]
  23. MIDAZOLAM HCL [Concomitant]
  24. PREVACID [Concomitant]
  25. SOMA [Concomitant]
  26. BACTRIM [Concomitant]
  27. CLARINEX [Concomitant]
  28. PHENERGAN [Concomitant]
  29. DEMEROL [Concomitant]
  30. VERSED [Concomitant]

REACTIONS (15)
  - ARTHRALGIA [None]
  - ARTHROPOD BITE [None]
  - ASTHENIA [None]
  - COLITIS ISCHAEMIC [None]
  - COLONIC POLYP [None]
  - DIVERTICULUM [None]
  - GASTROINTESTINAL HAEMORRHAGE [None]
  - HAEMORRHOIDS [None]
  - INTERVERTEBRAL DISC PROTRUSION [None]
  - IRRITABLE BOWEL SYNDROME [None]
  - PAIN IN EXTREMITY [None]
  - PHARYNGITIS STREPTOCOCCAL [None]
  - SEASONAL ALLERGY [None]
  - SENSATION OF HEAVINESS [None]
  - URINARY TRACT INFECTION [None]
